FAERS Safety Report 5490364-2 (Version None)
Quarter: 2007Q4

REPORT INFORMATION
  Report Type: 
  Country: None (occurrence: None)
  Receive Date: 20071011
  Receipt Date: 20070620
  Transmission Date: 20080405
  Serious: Yes (Other)
  Sender: FDA-Public Use
  Company Number: US-JNJFOC-20070605154

PATIENT
  Age: 28 Year
  Sex: Female
  Weight: 56.6996 kg

DRUGS (4)
  1. MONISTAT 1 COMBINATION PACK [Suspect]
     Indication: FUNGAL INFECTION
     Dosage: 1200 MG, 1 IN, VAGINAL; 1200 MG, 1 IN, VAGINAL
     Route: 067
     Dates: start: 20070501, end: 20070501
  2. MONISTAT 1 COMBINATION PACK [Suspect]
     Indication: FUNGAL INFECTION
     Dosage: 1200 MG, 1 IN, VAGINAL; 1200 MG, 1 IN, VAGINAL
     Route: 067
     Dates: start: 20070607, end: 20070607
  3. MONISTAT 1 COMBINATION PACK [Suspect]
     Indication: FUNGAL INFECTION
     Dosage: 100MG TUBE (2% STRENGTH EXTERNAL CREAM)
     Route: 061
     Dates: start: 20070501, end: 20070501
  4. MONISTAT 1 COMBINATION PACK [Suspect]
     Indication: FUNGAL INFECTION
     Dosage: 100MG TUBE (2% STRENGTH EXTERNAL CREAM)
     Route: 061
     Dates: start: 20070607, end: 20070607

REACTIONS (1)
  - DRUG INEFFECTIVE [None]
